FAERS Safety Report 5331459-3 (Version None)
Quarter: 2007Q2

REPORT INFORMATION
  Report Type: 
  Country: None (occurrence: None)
  Receive Date: 20070522
  Receipt Date: 20070510
  Transmission Date: 20071010
  Serious: Yes (Hospitalization, Other)
  Sender: FDA-Public Use
  Company Number: US-PFIZER INC-2007038716

PATIENT
  Sex: Female
  Weight: 69.9 kg

DRUGS (7)
  1. LYRICA [Suspect]
     Dates: start: 20070501, end: 20070505
  2. CHANTIX [Suspect]
     Indication: SMOKING CESSATION THERAPY
  3. ATENOLOL [Concomitant]
  4. CAPTOPRIL [Concomitant]
  5. ALL OTHER THERAPEUTIC PRODUCTS [Concomitant]
  6. DIAZEPAM [Concomitant]
  7. DARVOCET [Concomitant]

REACTIONS (4)
  - BALANCE DISORDER [None]
  - RESPIRATORY ARREST [None]
  - TREMOR [None]
  - VASCULAR OPERATION [None]
